FAERS Safety Report 9859528 (Version 1)
Quarter: 2014Q1

REPORT INFORMATION
  Report Type: Spontaneous
  Country: US (occurrence: US)
  Receive Date: 20140131
  Receipt Date: 20140131
  Transmission Date: 20141002
  Serious: No
  Sender: FDA-Public Use
  Company Number: US-009507513-1401USA011338

PATIENT
  Age: 54 Year
  Sex: Male

DRUGS (5)
  1. FOSAMAX [Suspect]
     Indication: PROPHYLAXIS
     Dosage: 35 MG, QW
     Route: 048
     Dates: start: 20140111, end: 20140118
  2. CYTOXAN [Concomitant]
     Indication: VASCULITIS
     Dosage: UNK
     Dates: end: 20140114
  3. METOPROLOL SUCCINATE [Concomitant]
  4. PREDNISONE [Suspect]
     Indication: VASCULITIS
     Dosage: 20 MG, QD
     Route: 048
  5. PREDNISONE [Suspect]
     Dosage: 40 MG, QD
     Route: 048
     Dates: start: 2014

REACTIONS (2)
  - Rash [Not Recovered/Not Resolved]
  - Hepatic enzyme increased [Unknown]
